FAERS Safety Report 16054453 (Version 1)
Quarter: 2019Q1

REPORT INFORMATION
  Report Type: Spontaneous
  Country: US (occurrence: US)
  Receive Date: 20190309
  Receipt Date: 20190309
  Transmission Date: 20190418
  Serious: No
  Sender: FDA-Public Use
  Company Number: PHEH2019US009465

PATIENT
  Age: 76 Year
  Sex: Female

DRUGS (2)
  1. AFINITOR [Suspect]
     Active Substance: EVEROLIMUS
     Indication: CHEMOTHERAPY MULTIPLE AGENTS SYSTEMIC
     Dosage: 10 MG, ONCE/SINGLE
     Route: 048
     Dates: start: 20190206
  2. AFINITOR [Suspect]
     Active Substance: EVEROLIMUS
     Dosage: 5 MG, ONCE/SINGLE
     Route: 048
     Dates: end: 20190221

REACTIONS (1)
  - Stomatitis [Recovering/Resolving]

NARRATIVE: CASE EVENT DATE: 20190206
